FAERS Safety Report 5078169-8 (Version None)
Quarter: 2006Q3

REPORT INFORMATION
  Report Type: 
  Country: None (occurrence: None)
  Receive Date: 20060811
  Receipt Date: 20060608
  Transmission Date: 20061208
  Serious: Yes (Other)
  Sender: FDA-Public Use
  Company Number: PHBS2006AU08930

PATIENT
  Age: 28 Year
  Sex: Female
  Weight: 50 kg

DRUGS (1)
  1. PAMIDRONATE DISODIUM [Suspect]
     Indication: OSTEOGENESIS IMPERFECTA
     Dosage: 1 MG/KG, EVERY 2 MONTHS
     Route: 042
     Dates: start: 20011001, end: 20030201

REACTIONS (5)
  - BACK PAIN [None]
  - DRUG EXPOSURE BEFORE PREGNANCY [None]
  - NORMAL NEWBORN [None]
  - PELVIC PAIN [None]
  - PREMATURE BABY [None]
